FAERS Safety Report 5766730-4 (Version None)
Quarter: 2008Q2

REPORT INFORMATION
  Report Type: 
  Country: None (occurrence: None)
  Receive Date: 20080610
  Receipt Date: 20080610
  Transmission Date: 20081010
  Serious: Yes (Other)
  Sender: FDA-Public Use
  Company Number: None

PATIENT
  Age: 33 Year
  Sex: Male
  Weight: 79.3795 kg

DRUGS (2)
  1. CYMBALTA [Suspect]
     Indication: ANXIETY
     Dosage: 60 MG ONCE DAILY BUCCAL
     Route: 002
     Dates: start: 20061015, end: 20071015
  2. CYMBALTA [Suspect]
     Indication: HYPERTENSION
     Dosage: 60 MG ONCE DAILY BUCCAL
     Route: 002
     Dates: start: 20061015, end: 20071015

REACTIONS (6)
  - ABNORMAL BEHAVIOUR [None]
  - ALCOHOL ABUSE [None]
  - ANTISOCIAL BEHAVIOUR [None]
  - EMOTIONAL DISORDER [None]
  - IMPAIRED WORK ABILITY [None]
  - SUBSTANCE ABUSE [None]
